FAERS Safety Report 4334023-8 (Version None)
Quarter: 2004Q1

REPORT INFORMATION
  Report Type: 
  Country: None (occurrence: None)
  Receive Date: 20040329
  Receipt Date: 20040112
  Transmission Date: 20041129
  Serious: No
  Sender: FDA-Public Use
  Company Number: 04P-163-0247098-00

PATIENT
  Age: 73 Year
  Sex: Female

DRUGS (17)
  1. HUMIRA [Suspect]
     Indication: RHEUMATOID ARTHRITIS
     Dosage: 40 MG, 1 IN 2 WK, SUBCUTANEOUS
     Route: 058
     Dates: start: 20030822, end: 20040102
  2. LEVOTHYROXINE SODIUM [Concomitant]
  3. RALOXIFENE HCL [Concomitant]
  4. CETIRIZINE HCL [Concomitant]
  5. LIBRIUM [Concomitant]
  6. FOLIC ACID [Concomitant]
  7. SULFASALAZINE [Concomitant]
  8. PAROXETINE HCL [Concomitant]
  9. TIMOLOL MALEATE [Concomitant]
  10. FLUOROMETHOLONE [Concomitant]
  11. RISENDRONATE SODIUM [Concomitant]
  12. FERROUS SULFATE TAB [Concomitant]
  13. ACETAMINOPHEN [Concomitant]
  14. ESOMEPRAZOLE [Concomitant]
  15. MULTIVITAMIN [Concomitant]
  16. CALCITRATE WITH D [Concomitant]
  17. GLUCOSAMINE SULFATE [Concomitant]

REACTIONS (8)
  - COUGH [None]
  - INJECTION SITE ERYTHEMA [None]
  - INJECTION SITE HAEMORRHAGE [None]
  - INJECTION SITE URTICARIA [None]
  - LACRIMATION INCREASED [None]
  - PHARYNGOLARYNGEAL PAIN [None]
  - RHINORRHOEA [None]
  - SNEEZING [None]
